FAERS Safety Report 4395175-7 (Version None)
Quarter: 2004Q3

REPORT INFORMATION
  Report Type: 
  Country: None (occurrence: None)
  Receive Date: 20040706
  Receipt Date: 20040618
  Transmission Date: 20050211
  Serious: Yes (Hospitalization, Other)
  Sender: FDA-Public Use
  Company Number: 237735

PATIENT
  Age: 27 Year
  Sex: Female
  Weight: 73 kg

DRUGS (6)
  1. NOVOSEVEN [Suspect]
     Indication: POSTPARTUM HAEMORRHAGE
     Dosage: TOTAL OF 4.8 MG, INTRAVENOUS
     Route: 042
     Dates: start: 20031230, end: 20031230
  2. SUFENTANIL CITRATE [Concomitant]
  3. DIPRIVAN [Concomitant]
  4. TRASYLOL [Concomitant]
  5. NALADOR (SULPROSTONE) [Concomitant]
  6. AUGMENTIN '125' [Concomitant]

REACTIONS (4)
  - ABDOMINAL PAIN [None]
  - HAEMOGLOBIN DECREASED [None]
  - PLATELET COUNT DECREASED [None]
  - THROMBOPHLEBITIS [None]
